FAERS Safety Report 14142110 (Version 1)
Quarter: 2017Q4

REPORT INFORMATION
  Report Type: Report from Study
  Country: US (occurrence: US)
  Receive Date: 20171030
  Receipt Date: 20171030
  Transmission Date: 20180321
  Serious: No
  Sender: FDA-Public Use
  Company Number: US-IPSEN BIOPHARMACEUTICALS, INC.-2011-4811

PATIENT
  Sex: Male

DRUGS (1)
  1. INCRELEX [Suspect]
     Active Substance: MECASERMIN
     Indication: BODY HEIGHT BELOW NORMAL
     Dosage: 72 UNITS
     Route: 058
     Dates: start: 20100708, end: 201111

REACTIONS (4)
  - Crying [Recovered/Resolved]
  - Screaming [Recovered/Resolved]
  - Blood glucose decreased [Recovered/Resolved]
  - Depressed mood [Recovered/Resolved]
